FAERS Safety Report 13226917 (Version 2)
Quarter: 2017Q1

REPORT INFORMATION
  Report Type: Spontaneous
  Country: US (occurrence: US)
  Receive Date: 20170213
  Receipt Date: 20170329
  Transmission Date: 20170428
  Serious: Yes (Other)
  Sender: FDA-Public Use
  Company Number: US-BAYER-2017-019862

PATIENT
  Age: 19 Year
  Sex: Female

DRUGS (1)
  1. KYLEENA [Suspect]
     Active Substance: LEVONORGESTREL
     Indication: CONTRACEPTION
     Dosage: 16 MCG/24HR, CONT
     Route: 015
     Dates: start: 20170130, end: 20170130

REACTIONS (3)
  - Complication of device insertion [None]
  - Seizure [None]
  - Syncope [None]

NARRATIVE: CASE EVENT DATE: 20170130
